FAERS Safety Report 15702662 (Version 1)
Quarter: 2018Q4

REPORT INFORMATION
  Report Type: Spontaneous
  Country: ZA (occurrence: ZA)
  Receive Date: 20181210
  Receipt Date: 20181210
  Transmission Date: 20190205
  Serious: Yes (Other)
  Sender: FDA-Public Use
  Company Number: ZA-CIPLA LTD.-2018ZA23384

PATIENT

DRUGS (3)
  1. WARFARIN [Suspect]
     Active Substance: WARFARIN
     Indication: ANTICOAGULANT THERAPY
     Dosage: UNK, UP TO 6 WEEKS^ GESTATION
     Route: 065
  2. HEPARIN [Suspect]
     Active Substance: HEPARIN SODIUM
     Indication: ANTICOAGULANT THERAPY
     Dosage: UNK, FROM 6 TO 12 WEEKS^ GESTATION
     Route: 042
  3. WARFARIN [Suspect]
     Active Substance: WARFARIN
     Dosage: UNK, FROM 12 TO 36 WEEKS^ GESTATION AS REPORTED
     Route: 065

REACTIONS (6)
  - Exposure during pregnancy [Unknown]
  - Shock [Unknown]
  - Premature delivery [Unknown]
  - Peripartum haemorrhage [Unknown]
  - Postpartum sepsis [Unknown]
  - Contraindicated product administered [Unknown]
